FAERS Safety Report 4874232-2 (Version None)
Quarter: 2005Q4

REPORT INFORMATION
  Report Type: 
  Country: None (occurrence: None)
  Receive Date: 20051201
  Receipt Date: 20050810
  Transmission Date: 20060501
  Serious: No
  Sender: FDA-Public Use
  Company Number: 2005PV001001

PATIENT
  Age: 56 Year
  Sex: Female
  Weight: 115.2136 kg

DRUGS (9)
  1. BYETTA [Suspect]
     Indication: DIABETES MELLITUS NON-INSULIN-DEPENDENT
     Dosage: 5 MCG; BID; SC; 10 MCG; BID; SC
     Route: 058
     Dates: start: 20050806, end: 20050904
  2. BYETTA [Suspect]
     Indication: DIABETES MELLITUS NON-INSULIN-DEPENDENT
     Dosage: 5 MCG; BID; SC; 10 MCG; BID; SC
     Route: 058
     Dates: start: 20050905, end: 20050906
  3. ADVIL [Concomitant]
  4. PROTONIX [Concomitant]
  5. LIPITOR [Concomitant]
  6. VICODIN [Concomitant]
  7. ASPIRIN [Concomitant]
  8. ZOLOFT [Concomitant]
  9. GLUCOPHAGE [Concomitant]

REACTIONS (9)
  - CONDITION AGGRAVATED [None]
  - DEVICE FAILURE [None]
  - DRUG DOSE OMISSION [None]
  - DYSPEPSIA [None]
  - FLUID RETENTION [None]
  - INJECTION SITE PAIN [None]
  - NAUSEA [None]
  - NERVOUSNESS [None]
  - OEDEMA PERIPHERAL [None]
